FAERS Safety Report 9819504 (Version 1)
Quarter: 2014Q1

REPORT INFORMATION
  Report Type: Spontaneous
  Country: ES (occurrence: ES)
  Receive Date: 20140115
  Receipt Date: 20140115
  Transmission Date: 20141002
  Serious: Yes (Other)
  Sender: FDA-Public Use
  Company Number: PHHY2014ES002593

PATIENT
  Sex: Male

DRUGS (4)
  1. METHYLPREDNISOLONE [Suspect]
     Indication: ANAPHYLACTIC SHOCK
     Dosage: 40 MG, UNK
     Route: 030
  2. ANTIPSYCHOTICS [Concomitant]
  3. CITALOPRAM [Concomitant]
  4. LEVOMEPROMAZINE [Concomitant]

REACTIONS (4)
  - Speech disorder [Unknown]
  - Psychotic disorder [Unknown]
  - Delusion [Unknown]
  - Mania [Unknown]
